FAERS Safety Report 4280902-X (Version None)
Quarter: 2004Q1

REPORT INFORMATION
  Report Type: 
  Country: None (occurrence: None)
  Receive Date: 20040129
  Receipt Date: 20031203
  Transmission Date: 20041129
  Serious: Yes (Other)
  Sender: FDA-Public Use
  Company Number: GB-GLAXOSMITHKLINE-B0316911A

PATIENT
  Sex: Female

DRUGS (6)
  1. DARAPRIM [Suspect]
     Indication: TOXOPLASMOSIS
     Route: 065
  2. FOLINIC ACID [Concomitant]
  3. CLINDAMYCIN [Concomitant]
  4. SULPHADIAZINE [Concomitant]
  5. CODYDRAMOL [Concomitant]
  6. PENICILLIN [Concomitant]

REACTIONS (1)
  - SICKLE CELL ANAEMIA WITH CRISIS [None]
